FAERS Safety Report 25219409 (Version 2)
Quarter: 2025Q2

REPORT INFORMATION
  Report Type: Spontaneous
  Country: US (occurrence: US)
  Receive Date: 20250421
  Receipt Date: 20250515
  Transmission Date: 20250716
  Serious: Yes (Other)
  Sender: AMGEN
  Company Number: US-AMGEN-USASP2025076596

PATIENT
  Sex: Male

DRUGS (4)
  1. ENBREL [Suspect]
     Active Substance: ETANERCEPT
     Indication: Tumour necrosis factor receptor-associated periodic syndrome
     Dosage: 50 MILLIGRAM, QWK
     Route: 065
     Dates: start: 2023, end: 2024
  2. ENBREL [Suspect]
     Active Substance: ETANERCEPT
     Indication: Off label use
     Dosage: 50 MILLIGRAM, QWK
     Route: 065
     Dates: start: 2025
  3. ILARIS [Concomitant]
     Active Substance: CANAKINUMAB
     Route: 065
  4. COLCHICINE [Concomitant]
     Active Substance: COLCHICINE
     Route: 065

REACTIONS (3)
  - Autoimmune disorder [Unknown]
  - Testicular pain [Unknown]
  - Off label use [Unknown]

NARRATIVE: CASE EVENT DATE: 20230101
